FAERS Safety Report 12262097 (Version 1)
Quarter: 2016Q2

REPORT INFORMATION
  Report Type: Spontaneous
  Country: US (occurrence: US)
  Receive Date: 20160413
  Receipt Date: 20160413
  Transmission Date: 20160815
  Serious: No
  Sender: FDA-Public Use
  Company Number: US-GLAXOSMITHKLINE-US2016GSK049265

PATIENT
  Sex: Male
  Weight: 66.67 kg

DRUGS (3)
  1. VORICONAZOLE. [Suspect]
     Active Substance: VORICONAZOLE
     Indication: FUNGAL INFECTION
     Dosage: 200 MG, BID
     Route: 048
     Dates: start: 20160315
  2. ZOVIRAX [Suspect]
     Active Substance: ACYCLOVIR
     Indication: LIP BLISTER
     Dosage: UNK
  3. METHOTREXATE [Concomitant]
     Active Substance: METHOTREXATE

REACTIONS (3)
  - Drug ineffective [Unknown]
  - Condition aggravated [Recovering/Resolving]
  - Lip blister [Recovering/Resolving]
